FAERS Safety Report 13292547 (Version 2)
Quarter: 2017Q2

REPORT INFORMATION
  Report Type: Spontaneous
  Country: US (occurrence: US)
  Receive Date: 20170303
  Receipt Date: 20170413
  Transmission Date: 20170830
  Serious: Yes (Other)
  Sender: FDA-Public Use
  Company Number: US-DRREDDYS-USA/USA/17/0087590

PATIENT
  Age: 20 Year
  Sex: Female
  Weight: 75.7 kg

DRUGS (2)
  1. ZENATANE [Suspect]
     Active Substance: ISOTRETINOIN
     Route: 065
     Dates: end: 20170224
  2. ZENATANE [Suspect]
     Active Substance: ISOTRETINOIN
     Indication: PRODUCT USED FOR UNKNOWN INDICATION
     Route: 065
     Dates: start: 20160822

REACTIONS (4)
  - Exposure during pregnancy [Unknown]
  - Abortion spontaneous [Unknown]
  - Haemorrhage [Recovered/Resolved]
  - Ovarian cyst [Unknown]

NARRATIVE: CASE EVENT DATE: 20170306
